FAERS Safety Report 17246214 (Version 3)
Quarter: 2020Q4

REPORT INFORMATION
  Report Type: Spontaneous
  Country: US (occurrence: US)
  Receive Date: 20200108
  Receipt Date: 20201113
  Transmission Date: 20210113
  Serious: Yes (Other)
  Sender: FDA-Public Use
  Company Number: US-PFIZER INC-2020002243

PATIENT
  Age: 50 Year
  Sex: Female
  Weight: 165.5 kg

DRUGS (11)
  1. LYRICA [Suspect]
     Active Substance: PREGABALIN
     Dosage: UNK
     Dates: start: 201909, end: 201909
  2. LYRICA [Suspect]
     Active Substance: PREGABALIN
     Indication: DIABETIC NEUROPATHY
     Dosage: UNK, 3X/DAY (3 TIMES A DAY)
  3. SPIRONOLACTONE. [Concomitant]
     Active Substance: SPIRONOLACTONE
     Indication: OEDEMA
     Dosage: 25 MG, 1X/DAY
  4. LYRICA [Suspect]
     Active Substance: PREGABALIN
     Dosage: UNK, 2X/DAY
     Dates: start: 201903
  5. OXYCODONE [Concomitant]
     Active Substance: OXYCODONE
     Indication: BACK PAIN
     Dosage: UNK (OXYCODONE 10/325 MG)
  6. ADVAIR HFA [Concomitant]
     Active Substance: FLUTICASONE PROPIONATE\SALMETEROL XINAFOATE
     Dosage: UNK(250 MG / 50MG)
  7. LYRICA [Suspect]
     Active Substance: PREGABALIN
     Dosage: 100 MG
  8. FLONASE [MOMETASONE FUROATE] [Concomitant]
     Active Substance: MOMETASONE FUROATE
     Dosage: UNK
  9. LYRICA [Suspect]
     Active Substance: PREGABALIN
     Dosage: UNK, 3X/DAY (3 TIMES A DAY UNKNOWN DOSE)
     Dates: start: 201905
  10. HYDROCHLOROTHIAZIDE. [Concomitant]
     Active Substance: HYDROCHLOROTHIAZIDE
     Indication: OEDEMA
     Dosage: UNK
  11. CYCLOBENZAPRINE. [Concomitant]
     Active Substance: CYCLOBENZAPRINE
     Dosage: 10 MG, UNK

REACTIONS (3)
  - Peripheral swelling [Recovering/Resolving]
  - Intentional dose omission [Unknown]
  - Weight increased [Unknown]
